FAERS Safety Report 17154631 (Version 1)
Quarter: 2019Q4

REPORT INFORMATION
  Report Type: Spontaneous
  Country: FR (occurrence: FR)
  Receive Date: 20191214
  Receipt Date: 20191214
  Transmission Date: 20200122
  Serious: Yes (Hospitalization)
  Sender: FDA-Public Use
  Company Number: FR-ROCHE-2492192

PATIENT
  Age: 74 Year
  Sex: Female
  Weight: 62 kg

DRUGS (1)
  1. ROACTEMRA [Suspect]
     Active Substance: TOCILIZUMAB
     Indication: RHEUMATOID ARTHRITIS
     Route: 058
     Dates: start: 20190325

REACTIONS (3)
  - Arthritis [Not Recovered/Not Resolved]
  - Dermo-hypodermitis [Not Recovered/Not Resolved]
  - Septic arthritis staphylococcal [Not Recovered/Not Resolved]

NARRATIVE: CASE EVENT DATE: 20191025
